FAERS Safety Report 6228004 (Version 2)
Quarter: 2020Q3

REPORT INFORMATION
  Report Type: Spontaneous
  Country: DK (occurrence: DK)
  Receive Date: 20070131
  Receipt Date: 20071127
  Transmission Date: 20201104
  Serious: Yes (Other)
  Sender: FDA-Public Use
  Company Number: DK-ROCHE-464880

PATIENT
  Age: 71 Year
  Sex: Female

DRUGS (4)
  1. IBANDRONIC ACID. [Suspect]
     Active Substance: IBANDRONIC ACID
     Route: 048
     Dates: start: 20051007, end: 20060102
  2. IBANDRONIC ACID. [Suspect]
     Active Substance: IBANDRONIC ACID
     Dosage: THERAPY RESTARTED AFTER 4 WEEKS
     Route: 048
     Dates: start: 20060130, end: 20060915
  3. AREDIA [Suspect]
     Active Substance: PAMIDRONATE DISODIUM
     Dosage: FORM RPTD AS POWDER AND SOLVENT FOR INFUSION.
     Route: 042
     Dates: start: 20050908, end: 20050908
  4. FEMARA [Concomitant]
     Active Substance: LETROZOLE
     Route: 048
     Dates: start: 20050902

REACTIONS (6)
  - Eye pain [Unknown]
  - Impaired healing [Not Recovered/Not Resolved]
  - Abdominal symptom [Unknown]
  - Osteoarthritis [Unknown]
  - Poor dental condition [Unknown]
  - Osteonecrosis [Not Recovered/Not Resolved]

NARRATIVE: CASE EVENT DATE: 20060101
